FAERS Safety Report 9193170 (Version 1)
Quarter: 2013Q1

REPORT INFORMATION
  Report Type: Spontaneous
  Country: US (occurrence: US)
  Receive Date: 20130327
  Receipt Date: 20130327
  Transmission Date: 20140127
  Serious: No
  Sender: FDA-Public Use
  Company Number: US-PFIZER INC-2013099016

PATIENT
  Age: 61 Year
  Sex: Female
  Weight: 58.96 kg

DRUGS (5)
  1. GABAPENTIN [Suspect]
     Indication: SPINAL PAIN
     Dosage: UNK
  2. GABAPENTIN [Suspect]
     Indication: PAIN
  3. LYRICA [Suspect]
     Indication: SPINAL PAIN
     Dosage: 150 MG, 3X/DAY
     Dates: start: 2008
  4. LYRICA [Suspect]
     Indication: PAIN
  5. LEVOTHYROXINE [Concomitant]
     Indication: HYPOTHYROIDISM
     Dosage: 135 UG, 1X/DAY

REACTIONS (2)
  - Drug ineffective [Unknown]
  - Alopecia [Not Recovered/Not Resolved]
